FAERS Safety Report 4590026-X (Version None)
Quarter: 2005Q1

REPORT INFORMATION
  Report Type: 
  Country: None (occurrence: None)
  Receive Date: 20050216
  Receipt Date: 20050131
  Transmission Date: 20050727
  Serious: Yes (Death)
  Sender: FDA-Public Use
  Company Number: B0349823A

PATIENT
  Age: 44 Year
  Sex: Female

DRUGS (3)
  1. WELLBUTRIN SR [Suspect]
     Dosage: ORAL
     Route: 048
  2. CLONAZEPAM [Suspect]
     Dosage: ORAL
     Route: 048
  3. ALPRAZOLAM [Suspect]
     Dosage: ORAL
     Route: 048

REACTIONS (5)
  - ANOXIC ENCEPHALOPATHY [None]
  - CARDIAC ARREST [None]
  - COMA [None]
  - CONVULSION [None]
  - PYREXIA [None]
